FAERS Safety Report 7122478-5 (Version None)
Quarter: 2010Q4

REPORT INFORMATION
  Report Type: 
  Country: None (occurrence: None)
  Receive Date: 20101124
  Receipt Date: 20101116
  Transmission Date: 20110411
  Serious: Yes (Hospitalization)
  Sender: FDA-Public Use
  Company Number: US-MERCK-1009USA05528

PATIENT
  Age: 4 Year
  Sex: Female
  Weight: 27 kg

DRUGS (2)
  1. SINGULAIR [Suspect]
     Indication: BRONCHITIS
     Route: 048
  2. SINGULAIR [Suspect]
     Indication: ASTHMA
     Route: 048

REACTIONS (4)
  - AGGRESSION [None]
  - ATTENTION DEFICIT/HYPERACTIVITY DISORDER [None]
  - DEPRESSED MOOD [None]
  - IRRITABILITY [None]
